FAERS Safety Report 9270560 (Version 1)
Quarter: 2013Q2

REPORT INFORMATION
  Report Type: Spontaneous
  Country: US (occurrence: US)
  Receive Date: 20130503
  Receipt Date: 20130503
  Transmission Date: 20140414
  Serious: No
  Sender: FDA-Public Use
  Company Number: US-ASTRAZENECA-2013SE28156

PATIENT
  Age: 57 Year
  Sex: Female
  Weight: 69.4 kg

DRUGS (5)
  1. CRESTOR [Suspect]
     Route: 048
     Dates: start: 2007, end: 200907
  2. CRESTOR [Suspect]
     Route: 048
     Dates: start: 20090923, end: 201301
  3. CRESTOR [Suspect]
     Route: 048
     Dates: start: 201301
  4. AMBIEN [Suspect]
     Route: 065
     Dates: end: 201211
  5. TRYPTOPHAN [Suspect]
     Indication: SLEEP DISORDER
     Route: 065

REACTIONS (5)
  - Hepatic steatosis [Unknown]
  - Adverse event [Unknown]
  - Cough [Unknown]
  - Aspartate aminotransferase increased [Unknown]
  - Alanine aminotransferase increased [Unknown]
